FAERS Safety Report 9098765 (Version 3)
Quarter: 2013Q4

REPORT INFORMATION
  Report Type: Spontaneous
  Country: US (occurrence: US)
  Receive Date: 20130213
  Receipt Date: 20131203
  Transmission Date: 20140711
  Serious: No
  Sender: FDA-Public Use
  Company Number: US-B.I. PHARMACEUTICALS,INC./RIDGEFIELD-2013-BI-03993BP

PATIENT
  Age: 77 Year
  Sex: Male
  Weight: 90.72 kg

DRUGS (12)
  1. COMBIVENT [Suspect]
     Indication: EMPHYSEMA
     Dosage: 18MCG/ 103MCG, 144MCG/ 1027MCG
     Route: 055
     Dates: start: 1996
  2. COMBIVENT [Suspect]
     Dosage: 18MCG/ 103MCG 1 PUFF OR 2 PUFF
     Route: 055
     Dates: start: 2003, end: 201305
  3. LUPRON [Concomitant]
     Indication: PROSTATE CANCER
     Route: 030
  4. HYDROCHLOROTHIAZIDE [Concomitant]
     Indication: HYPERTENSION
     Route: 048
  5. LISINOPRIL [Concomitant]
     Indication: HYPERTENSION
     Dosage: 20 MG
     Route: 048
  6. CELEXA [Concomitant]
     Route: 048
  7. METOPROLOL [Concomitant]
     Indication: HYPERTENSION
     Dosage: 25 MG
     Route: 048
  8. LIPITOR [Concomitant]
     Indication: BLOOD CHOLESTEROL INCREASED
     Dosage: 10 MG
     Route: 048
  9. METFORMIN [Concomitant]
     Indication: DIABETES MELLITUS
     Dosage: 1000 MG
     Route: 048
  10. CASODEX [Concomitant]
     Indication: PROSTATE CANCER
     Dosage: 50 MG
     Route: 048
  11. OMEPRAZOLE [Concomitant]
     Indication: GASTROOESOPHAGEAL REFLUX DISEASE
     Dosage: 20 MG
     Route: 048
  12. CALCIUM WITH VITAMIN D [Concomitant]
     Route: 048

REACTIONS (6)
  - Dyspnoea [Not Recovered/Not Resolved]
  - Type 2 diabetes mellitus [Not Recovered/Not Resolved]
  - Dysphonia [Not Recovered/Not Resolved]
  - Cough [Not Recovered/Not Resolved]
  - Amnesia [Not Recovered/Not Resolved]
  - Product quality issue [Recovered/Resolved]
